FAERS Safety Report 9219138 (Version 2)
Quarter: 2013Q3

REPORT INFORMATION
  Report Type: Spontaneous
  Country: US (occurrence: US)
  Receive Date: 20130409
  Receipt Date: 20130726
  Transmission Date: 20140515
  Serious: Yes (Hospitalization, Other)
  Sender: FDA-Public Use
  Company Number: PHEH2013US007968

PATIENT
  Age: 75 Year
  Sex: Male

DRUGS (7)
  1. AFINITOR [Suspect]
     Indication: RENAL CELL CARCINOMA
     Dosage: 10 MG, QD
     Route: 048
     Dates: start: 20130128, end: 20130326
  2. AFINITOR [Suspect]
     Dosage: UNK
  3. TAMSULOSIN [Concomitant]
     Indication: BENIGN PROSTATIC HYPERPLASIA
     Dosage: 0.4 MG, QD
  4. LIPITOR [Concomitant]
     Indication: BLOOD CHOLESTEROL
     Dosage: 20 MG, QD
  5. LEXAPRO [Concomitant]
     Indication: DEPRESSION
     Dosage: 10 MG, QD
     Dates: start: 20120810
  6. DILAUDID [Concomitant]
     Indication: PAIN
     Dosage: 20 MG AT 8 PM
     Route: 048
  7. AVODART [Concomitant]
     Indication: BENIGN PROSTATIC HYPERPLASIA
     Dosage: 0.5 MG, QD
     Route: 048

REACTIONS (3)
  - Nephropathy toxic [Recovering/Resolving]
  - Dehydration [Recovering/Resolving]
  - Lethargy [Recovering/Resolving]
